FAERS Safety Report 16637216 (Version 2)
Quarter: 2019Q3

REPORT INFORMATION
  Report Type: Spontaneous
  Country: US (occurrence: US)
  Receive Date: 20190726
  Receipt Date: 20190826
  Transmission Date: 20191004
  Serious: No
  Sender: FDA-Public Use
  Company Number: US-BAYER-2019-139896

PATIENT
  Age: 67 Year
  Sex: Male
  Weight: 130 kg

DRUGS (3)
  1. METFORMIN [Concomitant]
     Active Substance: METFORMIN HYDROCHLORIDE
  2. MIRALAX [Suspect]
     Active Substance: POLYETHYLENE GLYCOL 3350
     Indication: GASTROINTESTINAL DISORDER
     Dosage: 17G IN 4-8 OUNCES OF A BEVERAGE
     Route: 048
     Dates: start: 2017
  3. NORVASK [AMLODIPINE BESILATE] [Concomitant]
     Dosage: UNK

REACTIONS (1)
  - Drug ineffective [Unknown]
